FAERS Safety Report 20796840 (Version 12)
Quarter: 2025Q2

REPORT INFORMATION
  Report Type: Spontaneous
  Country: US (occurrence: US)
  Receive Date: 20220506
  Receipt Date: 20250627
  Transmission Date: 20250717
  Serious: Yes (Other)
  Sender: PFIZER
  Company Number: US-PFIZER INC-202200091427

PATIENT
  Age: 67 Year
  Sex: Female

DRUGS (1)
  1. PREMPRO [Suspect]
     Active Substance: ESTROGENS, CONJUGATED\MEDROXYPROGESTERONE ACETATE
     Indication: Menopausal symptoms

REACTIONS (14)
  - Dementia [Unknown]
  - Fatigue [Unknown]
  - Somnolence [Unknown]
  - Pharyngitis streptococcal [Unknown]
  - Irritability [Unknown]
  - Nasopharyngitis [Unknown]
  - Sinusitis [Unknown]
  - Ear infection [Unknown]
  - Labyrinthitis [Unknown]
  - Vertigo [Unknown]
  - Product dispensing error [Unknown]
  - Product prescribing error [Unknown]
  - Product dose omission issue [Unknown]
  - Intentional product misuse [Unknown]
